FAERS Safety Report 7603608-5 (Version None)
Quarter: 2011Q3

REPORT INFORMATION
  Report Type: 
  Country: None (occurrence: None)
  Receive Date: 20110712
  Receipt Date: 20110706
  Transmission Date: 20111222
  Serious: No
  Sender: FDA-Public Use
  Company Number: US-PFIZER INC-2011152004

PATIENT
  Sex: Female
  Weight: 51.7 kg

DRUGS (3)
  1. ASACOL [Concomitant]
     Dosage: UNK
  2. EVISTA [Concomitant]
     Dosage: UNK
  3. PRISTIQ [Suspect]
     Indication: DEPRESSION
     Dosage: 50 MG, 1X/DAY
     Route: 048
     Dates: start: 20100527

REACTIONS (2)
  - NAUSEA [None]
  - WEIGHT DECREASED [None]
